FAERS Safety Report 12589667 (Version 1)
Quarter: 2016Q3

REPORT INFORMATION
  Report Type: Spontaneous
  Country: US (occurrence: US)
  Receive Date: 20160725
  Receipt Date: 20160725
  Transmission Date: 20161109
  Serious: No
  Sender: FDA-Public Use
  Company Number: US-APOTEX-2016AP007025

PATIENT
  Age: 75 Year
  Sex: Male
  Weight: 78.47 kg

DRUGS (1)
  1. ATORVASTATIN CALCIUM. [Suspect]
     Active Substance: ATORVASTATIN CALCIUM
     Indication: LOW DENSITY LIPOPROTEIN ABNORMAL
     Dosage: 20 MG ONCE DAY AT NIGHT
     Route: 048
     Dates: start: 20160216, end: 20160220

REACTIONS (3)
  - Product substitution issue [Unknown]
  - Abdominal discomfort [Not Recovered/Not Resolved]
  - Diarrhoea [Not Recovered/Not Resolved]

NARRATIVE: CASE EVENT DATE: 20160218
